FAERS Safety Report 6680340-6 (Version None)
Quarter: 2010Q2

REPORT INFORMATION
  Report Type: 
  Country: None (occurrence: None)
  Receive Date: 20100412
  Receipt Date: 20100401
  Transmission Date: 20101027
  Serious: Yes (Hospitalization)
  Sender: FDA-Public Use
  Company Number: DSU-2010-01405

PATIENT
  Age: 58 Year
  Sex: Female
  Weight: 92.5338 kg

DRUGS (16)
  1. WELCHOL [Suspect]
     Indication: HYPERCHOLESTEROLAEMIA
     Dosage: 1250 MG (625 MG, BID), PER ORAL
     Route: 048
     Dates: start: 20091207, end: 20100328
  2. HYDRALAZINE (HYDRALAZINE) (HYDRALAZINE) [Suspect]
     Indication: DRUG USE FOR UNKNOWN INDICATION
     Dosage: ,PER ORAL
     Route: 048
     Dates: start: 20091207, end: 20100120
  3. ACTONEL (RISEDRONATE SODIUM) (35 MILLIGRAM) (RISEDRONATE SODIUM) [Concomitant]
  4. ALBUTEROL SULFATE HFA (SALBUTAMOL SULFATE) (SALBUTAMOL SULFATE) [Concomitant]
  5. CLONIDINE (CLONIDINE) (0.2 MILLIGRAM) (CLONIDINE) [Concomitant]
  6. COLCHICINE (COLCHICINE) (0.6 MILLIGRAM) (COLCHICINE) [Concomitant]
  7. FISH OIL (FISH OIL) (1000 MILLIGRAM) (FISH OIL) [Concomitant]
  8. FUROSEMIDE (FUROSEMIDE) (20 MILLIGRAM) (FUROSEMIDE) [Concomitant]
  9. MECLIZINE (MECLOZINE HYDROCHLORIDE) (25 MILLIGRAM)(MECLOZINE HYDROCHLO [Concomitant]
  10. MOBIC (MELOXICAM) (2.5 MILLIGRAM) (MELOXICAM) [Concomitant]
  11. OMEPRAZOLE (OMEPRAZOLE) (20 MILLIGRAM) (OMEPRAZOLE) [Concomitant]
  12. PHENERGAN (PROMETHAZINE) (25 MILLIGRAM) (PROMETHAZINE) [Concomitant]
  13. PROAIR HFA (SALBUTAMOL SULFATE) (SALBUTAMOL SULFATE) [Concomitant]
  14. TRAMADOL (TRAMADOL) (50 MILLIGRAM)(TRAMADOL) [Concomitant]
  15. TRIMPEX (TRIMETHOPRIM) (100 MILLIGRAM) (TRIMETHOPRIM) [Concomitant]
  16. VERAPAMIL (VERAPAMIL) (120 MILLIGRAM) (VERAPAMIL) [Concomitant]

REACTIONS (9)
  - ANAEMIA [None]
  - BACK PAIN [None]
  - BLOOD COUNT ABNORMAL [None]
  - CONSTIPATION [None]
  - GAIT DISTURBANCE [None]
  - HAEMORRHAGE [None]
  - MUSCLE SPASMS [None]
  - SWOLLEN TONGUE [None]
  - WAIST CIRCUMFERENCE INCREASED [None]
